FAERS Safety Report 6645919-6 (Version None)
Quarter: 2010Q1

REPORT INFORMATION
  Report Type: 
  Country: None (occurrence: None)
  Receive Date: 20100323
  Receipt Date: 20100315
  Transmission Date: 20100710
  Serious: Yes (Other)
  Sender: FDA-Public Use
  Company Number: US-BRISTOL-MYERS SQUIBB COMPANY-15020290

PATIENT
  Age: 83 Year
  Sex: Female

DRUGS (8)
  1. GLUCOPHAGE [Suspect]
     Indication: DIABETES MELLITUS
  2. ACTOS [Concomitant]
  3. SYNTHROID [Concomitant]
  4. DEMADEX [Concomitant]
  5. COUMADIN [Concomitant]
  6. TOPROL-XL [Concomitant]
  7. ESTRACE [Concomitant]
  8. HUMULIN INSULIN [Concomitant]

REACTIONS (3)
  - MALAISE [None]
  - PRODUCT ODOUR ABNORMAL [None]
  - SHOCK [None]
